FAERS Safety Report 9897317 (Version 1)
Quarter: 2014Q1

REPORT INFORMATION
  Report Type: Report from Study
  Country: BE (occurrence: BE)
  Receive Date: 20140214
  Receipt Date: 20140214
  Transmission Date: 20141002
  Serious: Yes (Other)
  Sender: FDA-Public Use
  Company Number: BE-VERTEX PHARMACEUTICALS INC-2014-000714

PATIENT
  Age: 69 Year
  Sex: Female

DRUGS (8)
  1. TELAPREVIR [Suspect]
     Indication: HEPATITIS C
  2. REBETOL [Concomitant]
     Indication: HEPATITIS C
     Dosage: DOSAGE FORM: UNSPECIFIED
     Route: 065
  3. PEGINTRON [Concomitant]
     Indication: HEPATITIS C
     Dosage: DOSAGE FORM: UNSPECIFIED
     Route: 065
  4. XANAX [Concomitant]
     Dosage: DOSAGE FORM: UNSPECIFIED, 1/2 AT 20 HOUR
     Route: 065
  5. PANTOMED [Concomitant]
     Dosage: DOSAGE FORM: UNSPECIFIED
     Route: 065
  6. ALDACTONE [Concomitant]
     Dosage: DOSAGE FORM: UNSPECIFIED
     Route: 065
  7. EMCONCOR [Concomitant]
     Dosage: DOSAGE FORM: UNSPECIFIED
     Route: 065
  8. ASAFLOW [Concomitant]
     Dosage: DOSAGE FORM: UNSPECIFIED
     Route: 065

REACTIONS (3)
  - Visual acuity reduced [Not Recovered/Not Resolved]
  - Diabetes mellitus [Not Recovered/Not Resolved]
  - Cataract [Not Recovered/Not Resolved]
